FAERS Safety Report 20920220 (Version 1)
Quarter: 2022Q2

REPORT INFORMATION
  Report Type: Spontaneous
  Country: US (occurrence: None)
  Receive Date: 20220604
  Receipt Date: 20220604
  Transmission Date: 20220720
  Serious: Yes (Other)
  Sender: FDA-Public Use
  Company Number: None

PATIENT
  Age: 34 Year
  Sex: Female
  Weight: 58.5 kg

DRUGS (2)
  1. ORILISSA [Suspect]
     Active Substance: ELAGOLIX SODIUM
     Indication: Endometriosis
  2. PREMPRO [Concomitant]

REACTIONS (4)
  - Feeling abnormal [None]
  - Hot flush [None]
  - Insomnia [None]
  - Premature menopause [None]

NARRATIVE: CASE EVENT DATE: 20210415
